FAERS Safety Report 21588082 (Version 4)
Quarter: 2023Q1

REPORT INFORMATION
  Report Type: Spontaneous
  Country: US (occurrence: US)
  Receive Date: 20221114
  Receipt Date: 20230217
  Transmission Date: 20230418
  Serious: No
  Sender: FDA-Public Use
  Company Number: US-PFIZER INC-202201283330

PATIENT
  Age: 14 Year
  Sex: Male
  Weight: 57.15 kg

DRUGS (2)
  1. GENOTROPIN [Suspect]
     Active Substance: SOMATROPIN
     Indication: Growth hormone deficiency
     Dosage: 3.4 (UNKNOWN UNIT), CYCLIC (THREE DAYS)
  2. GENOTROPIN [Suspect]
     Active Substance: SOMATROPIN
     Dosage: 3.6 (UNKNOWN UNIT), CYCLIC (THREE DAYS, AND THEN OFF ONE DAY)

REACTIONS (4)
  - Poor quality device used [Unknown]
  - Drug dose omission by device [Unknown]
  - Device mechanical issue [Unknown]
  - Device issue [Unknown]
